FAERS Safety Report 16669599 (Version 1)
Quarter: 2019Q3

REPORT INFORMATION
  Report Type: Spontaneous
  Country: US (occurrence: US)
  Receive Date: 20190620
  Receipt Date: 20190620
  Transmission Date: 20191004
  Serious: No
  Sender: FDA-Public Use
  Company Number: None

PATIENT
  Age: 35 Year
  Sex: Male

DRUGS (4)
  1. COREG [Suspect]
     Active Substance: CARVEDILOL
  2. EFFEXOR XR [Concomitant]
     Active Substance: VENLAFAXINE HYDROCHLORIDE
  3. TASIGNA [Suspect]
     Active Substance: NILOTINIB
     Dates: start: 20190605
  4. LISINOPRIL. [Concomitant]
     Active Substance: LISINOPRIL

REACTIONS (2)
  - Malaise [None]
  - Nausea [None]

NARRATIVE: CASE EVENT DATE: 20190617
